FAERS Safety Report 7414305-3 (Version None)
Quarter: 2011Q2

REPORT INFORMATION
  Report Type: 
  Country: None (occurrence: None)
  Receive Date: 20110411
  Receipt Date: 20110411
  Transmission Date: 20111010
  Serious: Yes (Life-Threatening)
  Sender: FDA-Public Use
  Company Number: None

PATIENT
  Age: 5 Month
  Sex: Male
  Weight: 5.2 kg

DRUGS (3)
  1. CISATRACURIUM 10 MG/ML HOSPIRA, INC [Suspect]
     Indication: MECHANICAL VENTILATION
     Dosage: 0.1 TO 0.4 MG / KG PER HOUR IV DRIP
  2. CISATRACURIUM 10 MG/ML HOSPIRA, INC [Suspect]
     Indication: RESPIRATORY FAILURE
     Dosage: 0.1 TO 0.4 MG / KG PER HOUR IV DRIP
  3. CISATRACURIUM 2 MG/ML HOSPIRA, INC. [Suspect]

REACTIONS (1)
  - DRUG INEFFECTIVE [None]
